FAERS Safety Report 21842223 (Version 1)
Quarter: 2023Q1

REPORT INFORMATION
  Report Type: Spontaneous
  Country: US (occurrence: US)
  Receive Date: 20230110
  Receipt Date: 20230110
  Transmission Date: 20230417
  Serious: Yes (Hospitalization, Other)
  Sender: FDA-Public Use
  Company Number: US-STRIDES ARCOLAB LIMITED-2022SP014345

PATIENT
  Age: 55 Year
  Sex: Male

DRUGS (8)
  1. CYCLOSPORINE [Suspect]
     Active Substance: CYCLOSPORINE
     Indication: Pustular psoriasis
     Dosage: UNK
     Route: 065
  2. METHOTREXATE [Suspect]
     Active Substance: METHOTREXATE
     Indication: Pustular psoriasis
     Dosage: 20 MILLIGRAM (WEEKLY)
     Route: 065
  3. METHOTREXATE [Suspect]
     Active Substance: METHOTREXATE
     Indication: Colitis ulcerative
  4. USTEKINUMAB [Suspect]
     Active Substance: USTEKINUMAB
     Indication: Pustular psoriasis
     Dosage: UNK
     Route: 065
  5. ETANERCEPT [Suspect]
     Active Substance: ETANERCEPT
     Indication: Pustular psoriasis
     Dosage: UNK
     Route: 065
  6. SECUKINUMAB [Suspect]
     Active Substance: SECUKINUMAB
     Indication: Pustular psoriasis
     Dosage: UNK
     Route: 065
  7. INFLIXIMAB [Suspect]
     Active Substance: INFLIXIMAB
     Indication: Pustular psoriasis
     Dosage: 700 MILLIGRAM  (INFUSION )(700 MG (8.64 MG/KG) EVERY 6 WEEKS INFUSION)
     Route: 050
  8. INFLIXIMAB [Suspect]
     Active Substance: INFLIXIMAB
     Indication: Colitis ulcerative
     Dosage: UNK, THERAPY CONTINUED AT REDUCED DOSAGE
     Route: 065

REACTIONS (5)
  - Meningitis listeria [Recovered/Resolved]
  - Listeriosis [Recovered/Resolved]
  - Bacteraemia [Recovered/Resolved]
  - Therapy partial responder [Unknown]
  - Off label use [Unknown]
